FAERS Safety Report 4813985-6 (Version None)
Quarter: 2005Q4

REPORT INFORMATION
  Report Type: 
  Country: None (occurrence: None)
  Receive Date: 20051028
  Receipt Date: 20050104
  Transmission Date: 20060501
  Serious: No
  Sender: FDA-Public Use
  Company Number: US-GLAXOSMITHKLINE-A0539503A

PATIENT
  Sex: Female

DRUGS (2)
  1. SEREVENT [Suspect]
     Indication: DRUG USE FOR UNKNOWN INDICATION
     Route: 055
  2. CONCURRENT MEDICATIONS [Concomitant]

REACTIONS (1)
  - MALAISE [None]
